FAERS Safety Report 5626514-4 (Version None)
Quarter: 2008Q1

REPORT INFORMATION
  Report Type: 
  Country: None (occurrence: None)
  Receive Date: 20080211
  Receipt Date: 20080121
  Transmission Date: 20080703
  Serious: Yes (Death, Other)
  Sender: FDA-Public Use
  Company Number: 2008EU000206

PATIENT
  Age: 63 Year
  Sex: Female

DRUGS (15)
  1. TACROLIMUS [Suspect]
     Indication: RENAL TRANSPLANT
     Dosage: 7 MG, UID/QD, ORAL, 0.5 MG, UID/QD, ORAL
     Route: 048
     Dates: start: 20030911, end: 20031022
  2. TACROLIMUS [Suspect]
     Indication: RENAL TRANSPLANT
     Dosage: 7 MG, UID/QD, ORAL, 0.5 MG, UID/QD, ORAL
     Route: 048
     Dates: start: 20031023
  3. DACLIZUMAB(DACLIZUMAB) [Suspect]
     Indication: RENAL TRANSPLANT
     Dosage: 2 MG/ML, TOTAL DOSE, IV NOS; 75 MG/ML, OTHER, IV NOS
     Route: 042
     Dates: end: 20031027
  4. DACLIZUMAB(DACLIZUMAB) [Suspect]
     Indication: RENAL TRANSPLANT
     Dosage: 2 MG/ML, TOTAL DOSE, IV NOS; 75 MG/ML, OTHER, IV NOS
     Route: 042
     Dates: start: 20030911
  5. MYCOPHENOLATE MOFETIL [Suspect]
     Indication: RENAL TRANSPLANT
     Dosage: 1000 MG, BID, ORAL
     Route: 048
     Dates: start: 20030912, end: 20031022
  6. PREDNISOLONE [Suspect]
     Indication: RENAL TRANSPLANT
     Dosage: 125 MG, /D, ORAL
     Route: 048
     Dates: start: 20030911
  7. OMEPRAZOL (OMEPRAZOLE  MAGNESIUM) [Concomitant]
  8. AMIODARONE HCL [Concomitant]
  9. ATENOLOL [Concomitant]
  10. ACFOL (FOLIC ACID) [Concomitant]
  11. CEFTAZIDIME [Concomitant]
  12. CLEXANE (ENOXAPARIN SODIUM) [Concomitant]
  13. ARANESP [Concomitant]
  14. TRIMETHOPRIMUM (TRIMETHOPRIM) [Concomitant]
  15. NISTATIN (NYSTATIN) [Concomitant]

REACTIONS (10)
  - ABDOMINAL PAIN [None]
  - ATRIAL FIBRILLATION [None]
  - ATRIOVENTRICULAR BLOCK [None]
  - BRADYCARDIA [None]
  - CARDIAC ARREST [None]
  - COMPLICATIONS OF TRANSPLANTED KIDNEY [None]
  - HAEMODIALYSIS [None]
  - PROCEDURAL HYPOTENSION [None]
  - SUDDEN CARDIAC DEATH [None]
  - TACHYCARDIA PAROXYSMAL [None]
